FAERS Safety Report 6105756-8 (Version None)
Quarter: 2009Q1

REPORT INFORMATION
  Report Type: 
  Country: None (occurrence: None)
  Receive Date: 20090227
  Receipt Date: 20081030
  Transmission Date: 20090719
  Serious: Yes (Hospitalization)
  Sender: FDA-Public Use
  Company Number: RB-5664-2008

PATIENT
  Sex: Male

DRUGS (2)
  1. SUBOXONE [Suspect]
     Indication: DRUG USE FOR UNKNOWN INDICATION
     Dosage: 8 MG BID TRANSPLACENTAL
     Route: 064
     Dates: start: 20071201, end: 20080122
  2. SUBUTEX [Suspect]
     Indication: DRUG USE FOR UNKNOWN INDICATION
     Dosage: 8 MG BID TRANSPLACENTAL
     Route: 064
     Dates: start: 20080123, end: 20080913

REACTIONS (1)
  - DRUG WITHDRAWAL SYNDROME NEONATAL [None]
